FAERS Safety Report 7100043-3 (Version None)
Quarter: 2010Q4

REPORT INFORMATION
  Report Type: 
  Country: None (occurrence: None)
  Receive Date: 20101112
  Receipt Date: 20100930
  Transmission Date: 20110411
  Serious: Yes (Other)
  Sender: FDA-Public Use
  Company Number: NL-GENENTECH-307129

PATIENT
  Age: 77 Year
  Sex: Female

DRUGS (2)
  1. MABTHERA [Suspect]
     Indication: AUTOIMMUNE DISORDER
     Dosage: UNK
     Route: 042
     Dates: start: 20080417, end: 20100105
  2. LEUKERAN [Concomitant]
     Indication: AUTOIMMUNE DISORDER
     Dosage: UNK
     Dates: start: 20080417, end: 20090625

REACTIONS (1)
  - GRANULOCYTOPENIA [None]
